FAERS Safety Report 17604308 (Version 2)
Quarter: 2020Q2

REPORT INFORMATION
  Report Type: Spontaneous
  Country: US (occurrence: US)
  Receive Date: 20200331
  Receipt Date: 20200414
  Transmission Date: 20200713
  Serious: No
  Sender: FDA-Public Use
  Company Number: US-PFIZER INC-2020124857

PATIENT
  Age: 58 Year
  Sex: Female
  Weight: 86 kg

DRUGS (2)
  1. LYRICA [Suspect]
     Active Substance: PREGABALIN
     Indication: NEUROPATHY PERIPHERAL
     Dosage: 225 MG, 2X/DAY
     Route: 048
  2. LYRICA [Suspect]
     Active Substance: PREGABALIN
     Indication: SCIATICA

REACTIONS (7)
  - Influenza like illness [Unknown]
  - Malaise [Unknown]
  - Withdrawal syndrome [Unknown]
  - Intentional product misuse [Unknown]
  - Headache [Unknown]
  - Feeling abnormal [Unknown]
  - Abdominal pain upper [Unknown]
